FAERS Safety Report 4320515-4 (Version None)
Quarter: 2004Q1

REPORT INFORMATION
  Report Type: 
  Country: None (occurrence: None)
  Receive Date: 20040317
  Receipt Date: 20040304
  Transmission Date: 20041129
  Serious: Yes (Death, Hospitalization, Other)
  Sender: FDA-Public Use
  Company Number: 04-03-0330

PATIENT
  Age: 49 Year
  Sex: Male

DRUGS (5)
  1. PACLITAXEL [Suspect]
     Indication: KAPOSI'S SARCOMA
     Dosage: 100MG/M2 INTRAVENOUS
     Route: 042
  2. LOPINAVIR [Suspect]
     Indication: HIV INFECTION
     Dosage: 400MG BID
  3. RITONAVIR [Suspect]
     Indication: HIV INFECTION
     Dosage: 400MG BID
  4. DELAVIRDINE [Suspect]
     Indication: HIV INFECTION
     Dosage: 600MG BID
  5. DIDANOSINE CAPSULES [Suspect]
     Indication: HIV INFECTION
     Dosage: ER 400MG QD

REACTIONS (14)
  - ALPHA HAEMOLYTIC STREPTOCOCCAL INFECTION [None]
  - AORTIC EMBOLUS [None]
  - ARTHRALGIA [None]
  - ELECTROMECHANICAL DISSOCIATION [None]
  - HAEMATOCRIT DECREASED [None]
  - HYPOTENSION [None]
  - MUCOSAL INFLAMMATION [None]
  - MYALGIA [None]
  - PLATELET COUNT DECREASED [None]
  - PNEUMONIA [None]
  - PRODUCTIVE COUGH [None]
  - PYREXIA [None]
  - TACHYPNOEA [None]
  - WHITE BLOOD CELL COUNT DECREASED [None]
